FAERS Safety Report 14505859 (Version 3)
Quarter: 2018Q2

REPORT INFORMATION
  Report Type: Spontaneous
  Country: US (occurrence: US)
  Receive Date: 20180208
  Receipt Date: 20180426
  Transmission Date: 20180711
  Serious: Yes (Hospitalization, Disabling)
  Sender: FDA-Public Use
  Company Number: US-JNJFOC-20180206353

PATIENT
  Age: 43 Year
  Sex: Female

DRUGS (1)
  1. INVOKANA [Suspect]
     Active Substance: CANAGLIFLOZIN
     Indication: TYPE 2 DIABETES MELLITUS
     Route: 048
     Dates: start: 20140116

REACTIONS (8)
  - Leg amputation [Unknown]
  - Localised infection [Recovering/Resolving]
  - Leg amputation [Unknown]
  - Osteomyelitis acute [Unknown]
  - Diabetic foot infection [Recovering/Resolving]
  - Gangrene [Recovering/Resolving]
  - Staphylococcal sepsis [Recovering/Resolving]
  - Gangrene [Unknown]

NARRATIVE: CASE EVENT DATE: 20160808
